FAERS Safety Report 22602925 (Version 5)
Quarter: 2023Q4

REPORT INFORMATION
  Report Type: Report from Study
  Country: US (occurrence: US)
  Receive Date: 20230615
  Receipt Date: 20231204
  Transmission Date: 20240110
  Serious: Yes (Hospitalization, Other)
  Sender: FDA-Public Use
  Company Number: US-ABBVIE-5290505

PATIENT
  Age: 78 Year
  Sex: Male
  Weight: 70.7 kg

DRUGS (3)
  1. IMBRUVICA [Suspect]
     Active Substance: IBRUTINIB
     Indication: Waldenstrom^s macroglobulinaemia
     Route: 048
     Dates: start: 20180717, end: 202303
  2. IMBRUVICA [Suspect]
     Active Substance: IBRUTINIB
     Indication: Waldenstrom^s macroglobulinaemia
     Dosage: TAKE 1 CAPSULE BY MOUTH ONCE DAILY IN THE MORNING?FORM STRENGTH: 420 MILLIGRAM?DURATION TEXT: IN ...
     Route: 048
     Dates: start: 202304, end: 202306
  3. IMBRUVICA [Suspect]
     Active Substance: IBRUTINIB
     Indication: Waldenstrom^s macroglobulinaemia
     Dosage: 420 MILLIGRAM?DURATION TEXT: IN THE MORNING
     Route: 048
     Dates: start: 202307

REACTIONS (7)
  - Aneurysm [Not Recovered/Not Resolved]
  - Neuropathy peripheral [Recovered/Resolved]
  - Sepsis [Recovered/Resolved]
  - Neuropathy peripheral [Recovered/Resolved]
  - Localised infection [Recovering/Resolving]
  - Neuropathy peripheral [Not Recovered/Not Resolved]
  - Eye disorder [Unknown]

NARRATIVE: CASE EVENT DATE: 20221101
